FAERS Safety Report 5075788-X (Version None)
Quarter: 2006Q3

REPORT INFORMATION
  Report Type: 
  Country: None (occurrence: None)
  Receive Date: 20060809
  Receipt Date: 20060412
  Transmission Date: 20061208
  Serious: No
  Sender: FDA-Public Use
  Company Number: US-GLAXOSMITHKLINE-A0602126A

PATIENT
  Age: 35 Year
  Sex: Female

DRUGS (1)
  1. SUMATRIPTAN SUCCINATE [Suspect]
     Indication: MIGRAINE
     Route: 058
     Dates: start: 20060329, end: 20060516

REACTIONS (4)
  - AUTOIMMUNE THYROIDITIS [None]
  - DRUG EXPOSURE DURING PREGNANCY [None]
  - NORMAL DELIVERY [None]
  - PREGNANCY [None]
